FAERS Safety Report 5303316-X (Version None)
Quarter: 2007Q2

REPORT INFORMATION
  Report Type: 
  Country: None (occurrence: None)
  Receive Date: 20070420
  Receipt Date: 20070416
  Transmission Date: 20071010
  Serious: Yes (Other)
  Sender: FDA-Public Use
  Company Number: JP-GLAXOSMITHKLINE-B0466363A

PATIENT
  Age: 8 Year
  Sex: Male
  Weight: 21 kg

DRUGS (12)
  1. ALKERAN [Suspect]
     Indication: ALLOGENIC BONE MARROW TRANSPLANTATION THERAPY
     Dosage: 70MG PER DAY
     Route: 042
     Dates: start: 20060115, end: 20060116
  2. FLUDARA [Suspect]
     Indication: ALLOGENIC BONE MARROW TRANSPLANTATION THERAPY
     Dosage: 30MG PER DAY
     Route: 042
     Dates: start: 20060110, end: 20060114
  3. TACROLIMUS HYDRATE [Concomitant]
     Dosage: .4MG PER DAY
     Route: 065
     Dates: start: 20060117, end: 20061023
  4. METHOTREXATE [Concomitant]
     Dosage: 6.5MG PER DAY
     Route: 065
     Dates: start: 20060119, end: 20060124
  5. PREDONINE [Concomitant]
     Dosage: 20MG PER DAY
     Route: 065
     Dates: start: 20060130, end: 20060217
  6. VICCLOX [Concomitant]
     Dosage: 400MG PER DAY
     Route: 048
     Dates: start: 20060111
  7. DIFLUCAN [Concomitant]
     Dosage: 200MG PER DAY
     Route: 048
     Dates: start: 20060104
  8. PANSPORIN [Concomitant]
     Dosage: 1800MG PER DAY
     Dates: start: 20060118
  9. MAXIPIME [Concomitant]
     Dosage: 1800MG PER DAY
     Route: 042
     Dates: start: 20060120
  10. MEROPEN [Concomitant]
     Dosage: 700MG PER DAY
     Route: 042
     Dates: start: 20060125
  11. MINOCYCLINE HCL [Concomitant]
     Dosage: 60MG PER DAY
     Route: 042
     Dates: start: 20060125
  12. GRAN [Concomitant]
     Dates: start: 20060123, end: 20060203

REACTIONS (1)
  - SEPSIS [None]
